FAERS Safety Report 9676929 (Version 1)
Quarter: 2013Q4

REPORT INFORMATION
  Report Type: Spontaneous
  Country: US (occurrence: US)
  Receive Date: 20131108
  Receipt Date: 20131108
  Transmission Date: 20140711
  Serious: No
  Sender: FDA-Public Use
  Company Number: US-SANOFI-AVENTIS-2013SA092564

PATIENT
  Age: 3 Year
  Sex: Female

DRUGS (1)
  1. ALLEGRA [Suspect]
     Indication: SEASONAL ALLERGY
     Dosage: TAKEN FROM: 2 WEEKS AGO DOSE:1 TEASPOON(S)
     Route: 048

REACTIONS (1)
  - Burning sensation [Not Recovered/Not Resolved]
